FAERS Safety Report 13386665 (Version 1)
Quarter: 2017Q1

REPORT INFORMATION
  Report Type: Spontaneous
  Country: CA (occurrence: CA)
  Receive Date: 20170330
  Receipt Date: 20170330
  Transmission Date: 20170429
  Serious: Yes (Hospitalization)
  Sender: FDA-Public Use
  Company Number: US-ASTRAZENECA-2017SE25640

PATIENT
  Age: 1 Year
  Sex: Female

DRUGS (2)
  1. SYNAGIS [Suspect]
     Active Substance: PALIVIZUMAB
     Indication: RESPIRATORY SYNCYTIAL VIRUS INFECTION
     Route: 030
     Dates: start: 2017, end: 2017
  2. SYNAGIS [Suspect]
     Active Substance: PALIVIZUMAB
     Indication: RESPIRATORY SYNCYTIAL VIRUS INFECTION
     Route: 030
     Dates: start: 2016, end: 2016

REACTIONS (6)
  - Dyspnoea [Unknown]
  - Bronchitis [Unknown]
  - Malaise [Unknown]
  - Nasopharyngitis [Unknown]
  - Pneumonia [Unknown]
  - Ear infection [Unknown]

NARRATIVE: CASE EVENT DATE: 2016
